FAERS Safety Report 8420348-3 (Version None)
Quarter: 2012Q2

REPORT INFORMATION
  Report Type: 
  Country: None (occurrence: None)
  Receive Date: 20120607
  Receipt Date: 20120506
  Transmission Date: 20120825
  Serious: Yes (Hospitalization, Other)
  Sender: FDA-Public Use
  Company Number: US-ABBOTT-12P-163-0943127-00

PATIENT

DRUGS (3)
  1. HUMIRA [Suspect]
     Indication: PRODUCT USED FOR UNKNOWN INDICATION
  2. UNKNOWN MEDICATION [Concomitant]
     Indication: FIBROMYALGIA
  3. UNKNOWN MEDICATION [Concomitant]
     Indication: BIPOLAR DISORDER

REACTIONS (13)
  - FIBROMYALGIA [None]
  - TREMOR [None]
  - DYSKINESIA [None]
  - PAIN [None]
  - MOVEMENT DISORDER [None]
  - SPINAL OSTEOARTHRITIS [None]
  - CONVULSION [None]
  - ADVERSE DRUG REACTION [None]
  - TIC [None]
  - NAUSEA [None]
  - NERVOUS SYSTEM DISORDER [None]
  - UNEVALUABLE EVENT [None]
  - SWELLING [None]
